FAERS Safety Report 9361667 (Version 1)
Quarter: 2013Q2

REPORT INFORMATION
  Report Type: Spontaneous
  Country: IT (occurrence: IT)
  Receive Date: 20130621
  Receipt Date: 20130621
  Transmission Date: 20140414
  Serious: Yes (Other)
  Sender: FDA-Public Use
  Company Number: IT-ELI_LILLY_AND_COMPANY-IT201306003896

PATIENT
  Age: 74 Year
  Sex: Male
  Weight: 75 kg

DRUGS (3)
  1. ALIMTA [Suspect]
     Indication: LUNG ADENOCARCINOMA
     Dosage: 930 MG, CYCLICAL
     Route: 042
     Dates: start: 20130311
  2. GLICONORM [Concomitant]
     Indication: DIABETES MELLITUS
     Route: 048
  3. CARDIOASPIRIN [Concomitant]
     Indication: ACUTE MYOCARDIAL INFARCTION

REACTIONS (2)
  - Loss of consciousness [Unknown]
  - Hyposideraemia [Recovering/Resolving]
